FAERS Safety Report 13404430 (Version 1)
Quarter: 2017Q2

REPORT INFORMATION
  Report Type: Spontaneous
  Country: US (occurrence: US)
  Receive Date: 20170405
  Receipt Date: 20170405
  Transmission Date: 20170830
  Serious: Yes (Other)
  Sender: FDA-Public Use
  Company Number: None

PATIENT
  Age: 69 Year
  Sex: Female
  Weight: 62.9 kg

DRUGS (3)
  1. ELAVIL [Suspect]
     Active Substance: AMITRIPTYLINE HYDROCHLORIDE
     Indication: NEURALGIA
     Route: 002
     Dates: start: 20151113, end: 20170328
  2. ZOFRAN [Suspect]
     Active Substance: ONDANSETRON HYDROCHLORIDE
     Indication: VOMITING
     Dosage: OTHER FREQUENCY:ONCE IN ED;?
     Route: 042
     Dates: start: 20170326, end: 20170326
  3. ZOFRAN [Suspect]
     Active Substance: ONDANSETRON HYDROCHLORIDE
     Indication: NAUSEA
     Dosage: OTHER FREQUENCY:ONCE IN ED;?
     Route: 042
     Dates: start: 20170326, end: 20170326

REACTIONS (8)
  - Dizziness [None]
  - Hyperhidrosis [None]
  - Condition aggravated [None]
  - Blood potassium decreased [None]
  - Nausea [None]
  - Ventricular tachycardia [None]
  - Drug interaction [None]
  - Electrocardiogram QT prolonged [None]

NARRATIVE: CASE EVENT DATE: 20170326
